FAERS Safety Report 4843602-0 (Version None)
Quarter: 2005Q4

REPORT INFORMATION
  Report Type: 
  Country: None (occurrence: None)
  Receive Date: 20051128
  Receipt Date: 20051115
  Transmission Date: 20060501
  Serious: Yes (Death, Hospitalization)
  Sender: FDA-Public Use
  Company Number: 2005150165

PATIENT
  Age: 73 Year
  Sex: Male
  Weight: 58.1 kg

DRUGS (5)
  1. CAMPTOSAR [Suspect]
     Indication: RECTAL CANCER
     Dosage: 50 MG (50 MG CYCLIC INTERVAL:EVERY WEEK) INTRAVENOUS
     Route: 042
     Dates: start: 20051013, end: 20051028
  2. CAPECITABINE (CAPECITABINE) [Suspect]
     Indication: RECTAL CANCER
     Dosage: 3000 MG (500 MG 2 ORAL)
     Route: 048
     Dates: start: 20051010, end: 20051027
  3. HYDROCODONE BITARTRATE [Concomitant]
  4. LOPERAMIDE HCL [Concomitant]
  5. HYDROCORTISONE [Concomitant]

REACTIONS (9)
  - ABDOMINAL PAIN [None]
  - ASTHENIA [None]
  - DIARRHOEA [None]
  - GASTROENTERITIS RADIATION [None]
  - HYPOKALAEMIA [None]
  - HYPONATRAEMIA [None]
  - MALIGNANT NEOPLASM PROGRESSION [None]
  - NAUSEA [None]
  - VOMITING [None]
